FAERS Safety Report 7007578-2 (Version None)
Quarter: 2010Q3

REPORT INFORMATION
  Report Type: 
  Country: None (occurrence: None)
  Receive Date: 20100922
  Receipt Date: 20100818
  Transmission Date: 20110219
  Serious: No
  Sender: FDA-Public Use
  Company Number: US-BAYER-201020093BCC

PATIENT
  Age: 80 Year
  Sex: Female

DRUGS (2)
  1. ALEVE [Suspect]
     Indication: PRODUCT USED FOR UNKNOWN INDICATION
     Dosage: TOTAL DAILY DOSE: 220 MG  UNIT DOSE: 220 MG
     Route: 048
     Dates: start: 20100817
  2. SIMVASTATIN [Concomitant]

REACTIONS (2)
  - FOREIGN BODY [None]
  - THROAT IRRITATION [None]
